FAERS Safety Report 9845300 (Version 1)
Quarter: 2014Q1

REPORT INFORMATION
  Report Type: Spontaneous
  Country: US (occurrence: US)
  Receive Date: 20140127
  Receipt Date: 20140127
  Transmission Date: 20141002
  Serious: No
  Sender: FDA-Public Use
  Company Number: US-BAUSCH-BL-2013-005578

PATIENT
  Age: 52 Year
  Sex: Female

DRUGS (1)
  1. ZYLET (LOTEPREDNOL ETABONATE 0.5% AND TOBRAMYCIN 0.3% OPHTHALMIC SUSPE [Suspect]
     Indication: EYE IRRITATION
     Dosage: 1 DROP IN LEFT EYE, FOUR TIMES PER DAY
     Route: 047
     Dates: start: 20131003, end: 20131010

REACTIONS (5)
  - Off label use [Recovered/Resolved]
  - Conjunctivitis [Recovering/Resolving]
  - Eye inflammation [Recovering/Resolving]
  - Foreign body sensation in eyes [Recovering/Resolving]
  - Eye pruritus [Recovering/Resolving]
